FAERS Safety Report 8219803-0 (Version None)
Quarter: 2012Q1

REPORT INFORMATION
  Report Type: 
  Country: None (occurrence: None)
  Receive Date: 20120319
  Receipt Date: 20120309
  Transmission Date: 20120608
  Serious: Yes (Other)
  Sender: FDA-Public Use
  Company Number: US-ASTRAZENECA-2010SE54168

PATIENT
  Age: 70 Year
  Sex: Female

DRUGS (1)
  1. NEXIUM [Suspect]
     Route: 048

REACTIONS (5)
  - BEDRIDDEN [None]
  - ABASIA [None]
  - COMPLEX REGIONAL PAIN SYNDROME [None]
  - DRUG DOSE OMISSION [None]
  - MALAISE [None]
